FAERS Safety Report 21577383 (Version 14)
Quarter: 2023Q1

REPORT INFORMATION
  Report Type: Report from Study
  Country: IN (occurrence: IN)
  Receive Date: 20221110
  Receipt Date: 20230323
  Transmission Date: 20230418
  Serious: Yes (Hospitalization)
  Sender: FDA-Public Use
  Company Number: IN-GLAXOSMITHKLINE-IN2022162635

PATIENT

DRUGS (14)
  1. BELANTAMAB MAFODOTIN [Suspect]
     Active Substance: BELANTAMAB MAFODOTIN
     Indication: Plasma cell myeloma
     Dosage: 140 MG/KG, Q3W
     Route: 042
     Dates: start: 20220923, end: 20220923
  2. BELANTAMAB MAFODOTIN [Suspect]
     Active Substance: BELANTAMAB MAFODOTIN
     Dosage: 140 MG/KG, Q3W
     Route: 042
     Dates: start: 20221014
  3. HYDROCORTISONE [Concomitant]
     Active Substance: HYDROCORTISONE
     Indication: Dyspnoea
     Dosage: 50 MG (FREQUENCY = ONCE)
     Route: 042
     Dates: start: 20221103, end: 20221103
  4. HYDROCORTISONE [Concomitant]
     Active Substance: HYDROCORTISONE
     Dosage: 50 MG
     Route: 042
     Dates: start: 20221105, end: 20221105
  5. RIBAVIRIN [Concomitant]
     Active Substance: RIBAVIRIN
     Indication: Respiratory syncytial virus infection
     Dosage: 400 MG, TID
     Route: 048
     Dates: start: 20221103, end: 20221117
  6. ZOSYN [Concomitant]
     Active Substance: PIPERACILLIN SODIUM\TAZOBACTAM SODIUM
     Indication: Bacterial infection
     Dosage: 4.5 G, Q6H
     Route: 042
     Dates: start: 20221103, end: 20221105
  7. TERBUTALINE [Concomitant]
     Active Substance: TERBUTALINE
     Indication: Cough
     Dosage: 5 ML (FREQUENCY = EVERY 8 HOURS)
     Route: 048
     Dates: start: 20221103
  8. TRANEXAMIC ACID [Concomitant]
     Active Substance: TRANEXAMIC ACID
     Indication: Haemorrhage prophylaxis
     Dosage: 500 MG (FREQUENCY = EVERY 8 HOURS)
     Route: 048
     Dates: start: 20221103, end: 20221104
  9. TRANEXAMIC ACID [Concomitant]
     Active Substance: TRANEXAMIC ACID
     Dosage: 1 G, UNKNOWN
     Route: 042
     Dates: start: 20221104, end: 20221104
  10. LEVALBUTEROL HYDROCHLORIDE [Concomitant]
     Active Substance: LEVALBUTEROL HYDROCHLORIDE
     Indication: Dyspnoea
     Dosage: UNK, Q6H
     Dates: start: 20221103
  11. CETIRIZINE HYDROCHLORIDE [Concomitant]
     Active Substance: CETIRIZINE HYDROCHLORIDE
     Indication: Hypersensitivity
     Dosage: 10 MG, SINGLE
     Route: 048
     Dates: start: 20221103
  12. AZITHROMYCIN [Concomitant]
     Active Substance: AZITHROMYCIN
     Indication: Infection
     Dosage: 500 MG (FREQUENCY = ONCE)
     Route: 048
     Dates: start: 20221105, end: 20221105
  13. FORMOTEROL [Concomitant]
     Active Substance: FORMOTEROL
     Indication: Dyspnoea
     Dosage: (FREQUENCY = UNKNOWN)
     Route: 055
     Dates: start: 20221105, end: 20221105
  14. VITAMIN K [Concomitant]
     Active Substance: PHYTONADIONE
     Indication: Haemoptysis
     Dosage: 10 MG (FREQUENCY = UNKNOWN)
     Route: 042
     Dates: start: 20221105, end: 20221105

REACTIONS (1)
  - Respiratory tract infection viral [Recovered/Resolved]

NARRATIVE: CASE EVENT DATE: 20221101
